FAERS Safety Report 6997362-8 (Version None)
Quarter: 2010Q3

REPORT INFORMATION
  Report Type: 
  Country: None (occurrence: None)
  Receive Date: 20100918
  Receipt Date: 20091012
  Transmission Date: 20110219
  Serious: No
  Sender: FDA-Public Use
  Company Number: US-WYE-H11606309

PATIENT
  Sex: Female
  Weight: 98.97 kg

DRUGS (5)
  1. PRISTIQ [Suspect]
     Indication: DEPRESSION
     Route: 048
     Dates: start: 20091007, end: 20091012
  2. METAMUCIL-2 [Concomitant]
  3. VICODIN [Concomitant]
  4. NOVOLOG [Concomitant]
  5. GLYBURIDE [Concomitant]

REACTIONS (2)
  - CONSTIPATION [None]
  - PRURITUS [None]
